FAERS Safety Report 18705516 (Version 2)
Quarter: 2021Q3

REPORT INFORMATION
  Report Type: Spontaneous
  Country: JP (occurrence: JP)
  Receive Date: 20210106
  Receipt Date: 20210709
  Transmission Date: 20211014
  Serious: Yes (Other)
  Sender: FDA-Public Use
  Company Number: NVSJ2020JP014577

PATIENT
  Age: 69 Year
  Sex: Female

DRUGS (4)
  1. BEOVU [Suspect]
     Active Substance: BROLUCIZUMAB-DBLL
     Indication: AGE-RELATED MACULAR DEGENERATION
     Dosage: 6 MG
     Route: 031
  2. BEOVU [Suspect]
     Active Substance: BROLUCIZUMAB-DBLL
     Dosage: 6 MG
     Route: 031
  3. BEOVU [Suspect]
     Active Substance: BROLUCIZUMAB-DBLL
     Dosage: 6 MG
     Route: 031
  4. BEOVU [Suspect]
     Active Substance: BROLUCIZUMAB-DBLL
     Dosage: 6 MG
     Route: 031

REACTIONS (7)
  - Vitreous opacities [Recovering/Resolving]
  - Anterior chamber cell [Recovered/Resolved]
  - Visual impairment [Unknown]
  - Visual acuity reduced [Unknown]
  - Eye inflammation [Recovering/Resolving]
  - Keratic precipitates [Unknown]
  - Anterior chamber inflammation [Recovering/Resolving]
